FAERS Safety Report 11294937 (Version 1)
Quarter: 2015Q3

REPORT INFORMATION
  Report Type: Spontaneous
  Country: US (occurrence: None)
  Receive Date: 20150722
  Receipt Date: 20150722
  Transmission Date: 20151125
  Serious: Yes (Hospitalization, Disabling)
  Sender: FDA-Public Use
  Company Number: None

PATIENT
  Age: 33 Year
  Sex: Female
  Weight: 54.89 kg

DRUGS (4)
  1. CENTRUM VITAMINS LIQUID [Concomitant]
     Active Substance: VITAMINS
  2. FLORASTOR PROBIOTIC [Concomitant]
  3. AMOXICILLIN. [Suspect]
     Active Substance: AMOXICILLIN
     Indication: ENDODONTIC PROCEDURE
     Route: 048
     Dates: start: 20150610, end: 20150620
  4. VANCOMYCIN [Concomitant]
     Active Substance: VANCOMYCIN

REACTIONS (5)
  - Clostridium difficile infection [None]
  - Impaired work ability [None]
  - General physical condition abnormal [None]
  - Emotional disorder [None]
  - Economic problem [None]

NARRATIVE: CASE EVENT DATE: 20150623
